FAERS Safety Report 23868224 (Version 1)
Quarter: 2024Q2

REPORT INFORMATION
  Report Type: Report from Study
  Country: US (occurrence: US)
  Receive Date: 20240517
  Receipt Date: 20240517
  Transmission Date: 20240716
  Serious: Yes (Death)
  Sender: FDA-Public Use
  Company Number: US-AMYLYX PHARMACEUTICALS, INC-AMX-001402

PATIENT
  Age: 82 Year
  Sex: Female

DRUGS (3)
  1. RELYVRIO [Suspect]
     Active Substance: SODIUM PHENYLBUTYRATE\TAURURSODIOL
     Indication: Amyotrophic lateral sclerosis
     Dosage: 1 SACHET ONCE DAILY FOR 3 WEEKS, THEN 1 SACHET TWICE DAILY
     Route: 048
     Dates: start: 20230202, end: 20240302
  2. EDARAVONE [Concomitant]
     Active Substance: EDARAVONE
     Indication: Product used for unknown indication
     Dosage: UNK
     Route: 050
  3. RILUZOLE [Concomitant]
     Active Substance: RILUZOLE
     Indication: Product used for unknown indication
     Dosage: UNK
     Route: 050

REACTIONS (17)
  - Respiratory failure [Fatal]
  - Faeces discoloured [Fatal]
  - Dysphagia [Fatal]
  - Intentional dose omission [Unknown]
  - Abdominal distension [Fatal]
  - Drug ineffective [Unknown]
  - Choking sensation [Fatal]
  - Salivary hypersecretion [Fatal]
  - Productive cough [Fatal]
  - Faecaloma [Not Recovered/Not Resolved]
  - Abdominal pain upper [Unknown]
  - Dyspnoea [Fatal]
  - Gastric dilatation [Not Recovered/Not Resolved]
  - Constipation [Unknown]
  - Diarrhoea [Not Recovered/Not Resolved]
  - Product dose omission issue [Unknown]
  - Feeding disorder [Fatal]

NARRATIVE: CASE EVENT DATE: 20230406
